FAERS Safety Report 6456085-4 (Version None)
Quarter: 2009Q4

REPORT INFORMATION
  Report Type: 
  Country: None (occurrence: None)
  Receive Date: 20091125
  Receipt Date: 20091116
  Transmission Date: 20100525
  Serious: Yes (Hospitalization)
  Sender: FDA-Public Use
  Company Number: DE-JNJFOC-20091104610

PATIENT
  Age: 79 Year
  Sex: Female
  Weight: 47 kg

DRUGS (9)
  1. REMINYL [Suspect]
     Route: 048
     Dates: start: 20090105
  2. REMINYL [Suspect]
     Route: 048
     Dates: start: 20090105
  3. REMINYL [Suspect]
     Indication: DRUG USE FOR UNKNOWN INDICATION
     Route: 048
     Dates: start: 20090105
  4. MELPERON [Interacting]
     Route: 048
     Dates: start: 20081230
  5. MELPERON [Interacting]
     Indication: DRUG USE FOR UNKNOWN INDICATION
     Route: 048
     Dates: start: 20081230
  6. POTASSIUM [Suspect]
     Route: 048
     Dates: start: 20090105
  7. POTASSIUM [Suspect]
     Route: 048
     Dates: start: 20090105
  8. POTASSIUM [Suspect]
     Indication: DRUG USE FOR UNKNOWN INDICATION
     Route: 048
     Dates: start: 20090105
  9. ZOPICLON [Concomitant]
     Route: 048
     Dates: start: 20090103

REACTIONS (6)
  - ABDOMINAL PAIN [None]
  - DECREASED APPETITE [None]
  - DRUG INTERACTION [None]
  - ERUCTATION [None]
  - NAUSEA [None]
  - VOMITING [None]
